FAERS Safety Report 15113723 (Version 2)
Quarter: 2018Q3

REPORT INFORMATION
  Report Type: Report from Study
  Country: FR (occurrence: FR)
  Receive Date: 20180706
  Receipt Date: 20180724
  Transmission Date: 20181010
  Serious: Yes (Hospitalization)
  Sender: FDA-Public Use
  Company Number: FR-ROCHE-2147840

PATIENT
  Age: 57 Year
  Sex: Female
  Weight: 75 kg

DRUGS (5)
  1. OBINUTUZUMAB. [Suspect]
     Active Substance: OBINUTUZUMAB
     Indication: LYMPHOMA
     Dosage: LAST ADMINISTRATION BEFORE SAE WAS ON 05/JUN/2018?ABSOLUTE (FLAT) DOSE OF 1000 MG ON DAYS 1, 8, AND
     Route: 042
     Dates: start: 20180514
  2. ATEZOLIZUMAB. [Suspect]
     Active Substance: ATEZOLIZUMAB
     Indication: LYMPHOMA
     Dosage: LAST ADMINISTRATION BEFORE SAE WAS ON 06/JUN/2018?ADMINISTERED AT A FLAT DOSE OF 840 MG ON DAYS 1 AN
     Route: 065
     Dates: start: 20180515
  3. VENETOCLAX. [Suspect]
     Active Substance: VENETOCLAX
     Indication: LYMPHOMA
     Dosage: LAST ADMINISTRATION BEFORE SAE WAS ON 26/JUN/2018?800 MG/D FROM DAY 8 OF CYCLE 1, EVERY DAY DURING 1
     Route: 065
     Dates: start: 20180522
  4. ZOPICLON [Concomitant]
     Active Substance: ZOPICLONE
     Route: 065
     Dates: start: 20180514
  5. ZELITREX [Concomitant]
     Active Substance: VALACYCLOVIR HYDROCHLORIDE
     Route: 065
     Dates: start: 20180514

REACTIONS (1)
  - Bronchitis [Recovered/Resolved]

NARRATIVE: CASE EVENT DATE: 20180626
